FAERS Safety Report 6785515-3 (Version None)
Quarter: 2010Q2

REPORT INFORMATION
  Report Type: 
  Country: None (occurrence: None)
  Receive Date: 20100621
  Receipt Date: 20100621
  Transmission Date: 20101027
  Serious: Yes (Hospitalization)
  Sender: FDA-Public Use
  Company Number: None

PATIENT
  Age: 81 Year
  Sex: Male
  Weight: 68.1 kg

DRUGS (11)
  1. HEPARIN [Suspect]
     Indication: CORONARY ARTERY BYPASS
     Dosage: VARIOUS VARIOUS IV
     Route: 042
     Dates: start: 20100424, end: 20100430
  2. HEPARIN [Suspect]
     Indication: INTRAVENOUS CATHETER MANAGEMENT
     Dosage: VARIOUS VARIOUS IV
     Route: 042
     Dates: start: 20100424, end: 20100430
  3. VALSARTAN [Concomitant]
  4. FISH OIL [Concomitant]
  5. AMBIEN [Concomitant]
  6. .. [Concomitant]
  7. .. [Concomitant]
  8. .. [Concomitant]
  9. .. [Concomitant]
  10. .. [Concomitant]
  11. .. [Concomitant]

REACTIONS (10)
  - ATRIAL FIBRILLATION [None]
  - CHEST PAIN [None]
  - CYANOSIS [None]
  - EXTREMITY NECROSIS [None]
  - FINGER AMPUTATION [None]
  - GANGRENE [None]
  - HAEMODYNAMIC INSTABILITY [None]
  - HEPARIN-INDUCED THROMBOCYTOPENIA [None]
  - HYPOTENSION [None]
  - LEG AMPUTATION [None]
